FAERS Safety Report 12059687 (Version 1)
Quarter: 2016Q1

REPORT INFORMATION
  Report Type: Spontaneous
  Country: US (occurrence: US)
  Receive Date: 20160210
  Receipt Date: 20160210
  Transmission Date: 20160526
  Serious: Yes (Other)
  Sender: FDA-Public Use
  Company Number: US-ALKERMES INC.-ALK-2016-000207

PATIENT

DRUGS (2)
  1. VIVITROL [Suspect]
     Active Substance: NALTREXONE
     Indication: ALCOHOLISM
     Dosage: 380 MG, QMO
     Route: 030
     Dates: start: 20151118
  2. VIVITROL [Suspect]
     Active Substance: NALTREXONE
     Dosage: 380 MG, QMO
     Route: 030
     Dates: start: 20151218

REACTIONS (12)
  - Blood triglycerides increased [Unknown]
  - Nausea [Unknown]
  - Blood cholesterol increased [Unknown]
  - Retching [Not Recovered/Not Resolved]
  - Oesophageal injury [Unknown]
  - Pancreatic enzymes increased [None]
  - Hepatic enzyme increased [Unknown]
  - Decreased appetite [Unknown]
  - Malaise [Unknown]
  - Gallbladder polyp [Not Recovered/Not Resolved]
  - Weight decreased [Unknown]
  - Vomiting [Not Recovered/Not Resolved]

NARRATIVE: CASE EVENT DATE: 201511
